FAERS Safety Report 9079133 (Version 1)
Quarter: 2013Q1

REPORT INFORMATION
  Report Type: Spontaneous
  Country: BR (occurrence: BR)
  Receive Date: 20130215
  Receipt Date: 20130215
  Transmission Date: 20140127
  Serious: Yes (Hospitalization)
  Sender: FDA-Public Use
  Company Number: BR-MYLANLABS-2013S1002693

PATIENT
  Sex: Male

DRUGS (13)
  1. AZATHIOPRINE [Suspect]
     Indication: IMMUNOSUPPRESSANT DRUG THERAPY
     Dosage: 100MG/D
     Route: 064
  2. CICLOSPORIN [Suspect]
     Indication: IMMUNOSUPPRESSANT DRUG THERAPY
     Dosage: 250 MG/D
     Route: 064
  3. FERROUS SULFATE [Concomitant]
     Dosage: 120 MG/D
     Route: 064
  4. METHYLDOPA [Concomitant]
     Indication: HYPERTENSION
     Dosage: 1 G/D; INCREASED TO 2G/D
     Route: 064
  5. ALDOMET [Concomitant]
     Indication: HYPERTENSION
     Dosage: 2 G/D
     Route: 064
  6. LEVOTHYROXINE SODIUM [Concomitant]
     Indication: HYPOTHYROIDISM
     Dosage: 25 MICROG/D; INCREASED TO 125 MICROG/D
     Route: 064
  7. LEVOTHYROXINE SODIUM [Concomitant]
     Indication: HYPOTHYROIDISM
     Dosage: 125 MICROG/D
     Route: 064
  8. NIFEDIPINE [Concomitant]
     Indication: HYPERTENSION
     Dosage: 40 MG/D
     Route: 064
  9. PROPRANOLOL [Concomitant]
     Indication: HYPERTENSION
     Dosage: 40 MG/D
     Route: 064
  10. NITROFURANTOIN [Concomitant]
     Indication: URINARY TRACT INFECTION
     Dosage: 400 MG/D; THEN 100 MG/D PROPHYLAXIS
     Route: 064
  11. MACRODANTIN [Concomitant]
     Indication: PROPHYLAXIS URINARY TRACT INFECTION
     Dosage: 100 MG/D
     Route: 064
  12. CEFALEXIN [Concomitant]
     Indication: URINARY TRACT INFECTION
     Dosage: 2 G/D
     Route: 064
  13. CEFUROXIME [Concomitant]
     Indication: URINARY TRACT INFECTION
     Dosage: 1 G/D
     Route: 064

REACTIONS (2)
  - Foetal growth restriction [Recovering/Resolving]
  - Foetal exposure during pregnancy [Recovering/Resolving]
